FAERS Safety Report 15165316 (Version 2)
Quarter: 2018Q3

REPORT INFORMATION
  Report Type: Spontaneous
  Country: JP (occurrence: JP)
  Receive Date: 20180719
  Receipt Date: 20180726
  Transmission Date: 20181010
  Serious: Yes (Other)
  Sender: FDA-Public Use
  Company Number: JP-JNJFOC-20180718336

PATIENT
  Sex: Female

DRUGS (2)
  1. ONEDURO [Suspect]
     Active Substance: FENTANYL
     Indication: PAIN
     Dosage: 12.5 MCG/HR, 25 MCG/HR AND 50 MCG/HR
     Route: 062
  2. MORPHINE HYDROCHLORIDE [Suspect]
     Active Substance: MORPHINE HYDROCHLORIDE
     Indication: PAIN
     Route: 065

REACTIONS (11)
  - Delirium [Unknown]
  - Pruritus [Unknown]
  - Off label use [Unknown]
  - Product adhesion issue [Unknown]
  - Urinary retention [Unknown]
  - Somnolence [Unknown]
  - Pain [Unknown]
  - Application site dermatitis [Unknown]
  - Wrong technique in product usage process [Unknown]
  - Oedema peripheral [Unknown]
  - Constipation [Unknown]
